FAERS Safety Report 24575231 (Version 1)
Quarter: 2024Q4

REPORT INFORMATION
  Report Type: Spontaneous
  Country: US (occurrence: US)
  Receive Date: 20241104
  Receipt Date: 20241104
  Transmission Date: 20250115
  Serious: Yes (Other)
  Sender: ORGANON
  Company Number: US-MLMSERVICE-20241021-PI234055-00226-1

PATIENT
  Age: 81 Year
  Sex: Female

DRUGS (2)
  1. REMERON [Suspect]
     Active Substance: MIRTAZAPINE
     Indication: Major depression
     Dosage: 7.5 MILLIGRAM, QD (LOW TRIAL DOSE, NIGHTLY)
     Route: 048
  2. PRAMIPEXOLE [Concomitant]
     Active Substance: PRAMIPEXOLE\PRAMIPEXOLE DIHYDROCHLORIDE
     Indication: Restless legs syndrome
     Dosage: 0.5 MILLIGRAM, TID
     Route: 048

REACTIONS (3)
  - Blood pressure fluctuation [Unknown]
  - Restless legs syndrome [Recovering/Resolving]
  - Condition aggravated [Recovering/Resolving]
